FAERS Safety Report 4353152-6 (Version None)
Quarter: 2004Q2

REPORT INFORMATION
  Report Type: 
  Country: None (occurrence: None)
  Receive Date: 20040429
  Receipt Date: 20040415
  Transmission Date: 20050107
  Serious: Yes (Other)
  Sender: FDA-Public Use
  Company Number: 205376

PATIENT
  Age: 42 Year
  Sex: Female
  Weight: 50 kg

DRUGS (1)
  1. MABTHERA (RITUXIMAB) CONC FOR SOLUTION FOR INFUSION [Suspect]
     Indication: THROMBOCYTOPENIC PURPURA
     Dosage: 550 MG, INTRAVENOUS
     Route: 042
     Dates: start: 20040311, end: 20040401

REACTIONS (6)
  - BLOOD CALCIUM DECREASED [None]
  - BLOOD MAGNESIUM DECREASED [None]
  - ELECTROENCEPHALOGRAM ABNORMAL [None]
  - HAEMOGLOBIN DECREASED [None]
  - MYOCLONUS [None]
  - PLATELET COUNT INCREASED [None]
